FAERS Safety Report 6933192-0 (Version None)
Quarter: 2010Q3

REPORT INFORMATION
  Report Type: 
  Country: None (occurrence: None)
  Receive Date: 20100820
  Receipt Date: 20100811
  Transmission Date: 20110219
  Serious: Yes (Hospitalization)
  Sender: FDA-Public Use
  Company Number: US-BIOGENIDEC-2010BI028408

PATIENT
  Age: 74 Year
  Sex: Female

DRUGS (2)
  1. AVONEX [Suspect]
     Indication: MULTIPLE SCLEROSIS
     Route: 030
     Dates: start: 20060424, end: 20100101
  2. OXYGEN [Concomitant]

REACTIONS (4)
  - CATHETER PLACEMENT [None]
  - HEARING IMPAIRED [None]
  - MOBILITY DECREASED [None]
  - PULMONARY FIBROSIS [None]
